FAERS Safety Report 10556494 (Version 2)
Quarter: 2014Q4

REPORT INFORMATION
  Report Type: Not Available
  Country: DE (occurrence: DE)
  Receive Date: 20141031
  Receipt Date: 20141110
  Transmission Date: 20150529
  Serious: Yes (Other)
  Sender: FDA-Public Use
  Company Number: DE-BEH-2014045861

PATIENT
  Age: 3 Year
  Sex: Male

DRUGS (1)
  1. PRIVIGEN [Suspect]
     Active Substance: HUMAN IMMUNOGLOBULIN G
     Indication: GUILLAIN-BARRE SYNDROME
     Dosage: 1 SEPARATE DOSE
     Route: 042
     Dates: start: 20141012

REACTIONS (11)
  - Thrombocytopenia [Unknown]
  - Pain [Recovered/Resolved]
  - Body temperature increased [Recovered/Resolved]
  - Leukopenia [Unknown]
  - Interleukin level increased [Unknown]
  - Circulatory collapse [Recovered/Resolved]
  - C-reactive protein increased [Unknown]
  - Inflammatory marker increased [Unknown]
  - Abdominal pain [Recovered/Resolved]
  - Vomiting [Recovered/Resolved]
  - Chills [Recovered/Resolved]

NARRATIVE: CASE EVENT DATE: 20141012
